FAERS Safety Report 7374722-7 (Version None)
Quarter: 2011Q1

REPORT INFORMATION
  Report Type: 
  Country: None (occurrence: None)
  Receive Date: 20110325
  Receipt Date: 20100902
  Transmission Date: 20110831
  Serious: No
  Sender: FDA-Public Use
  Company Number: US-MYLANLABS-2010S1016257

PATIENT
  Age: 50 Year
  Sex: Female
  Weight: 99.79 kg

DRUGS (6)
  1. PHENERGAN [Concomitant]
  2. FENTANYL-100 [Suspect]
     Indication: PAIN
     Dosage: Q72H
     Route: 062
     Dates: start: 20070101
  3. FIORINAL [Concomitant]
  4. PROPRANOLOL [Concomitant]
  5. PAXIL [Concomitant]
  6. AMBIEN [Concomitant]

REACTIONS (1)
  - FALSE NEGATIVE INVESTIGATION RESULT [None]
